FAERS Safety Report 6460787-3 (Version None)
Quarter: 2009Q4

REPORT INFORMATION
  Report Type: 
  Country: None (occurrence: None)
  Receive Date: 20091130
  Receipt Date: 20091120
  Transmission Date: 20100525
  Serious: Yes (Hospitalization)
  Sender: FDA-Public Use
  Company Number: GR-ABBOTT-09P-066-0607567-00

PATIENT
  Age: 80 Year
  Sex: Male
  Weight: 67 kg

DRUGS (18)
  1. ZEMPLAR [Suspect]
     Indication: HYPERPARATHYROIDISM SECONDARY
     Dosage: THREE TIMES PER WEEK
     Route: 042
     Dates: start: 20070427, end: 20091104
  2. ZEMPLAR [Suspect]
     Dosage: THREE TIMES PER WEEK
     Route: 042
     Dates: start: 20091104
  3. ADALAT CC [Concomitant]
     Indication: DRUG USE FOR UNKNOWN INDICATION
  4. LOPRESSOR [Concomitant]
     Indication: DRUG USE FOR UNKNOWN INDICATION
  5. TTS NITRONG [Concomitant]
     Indication: DRUG USE FOR UNKNOWN INDICATION
     Dosage: 5 MILLIGRAMS ONCE DAILY TTS
  6. RENAGEL [Concomitant]
     Indication: DRUG USE FOR UNKNOWN INDICATION
  7. FORSENOL [Concomitant]
     Indication: DRUG USE FOR UNKNOWN INDICATION
  8. OMACOR [Concomitant]
     Indication: DRUG USE FOR UNKNOWN INDICATION
  9. LEPUR [Concomitant]
     Indication: DRUG USE FOR UNKNOWN INDICATION
  10. FILICINE [Concomitant]
     Indication: DRUG USE FOR UNKNOWN INDICATION
  11. LOFTYL [Concomitant]
     Indication: DRUG USE FOR UNKNOWN INDICATION
  12. REVOTONINE [Concomitant]
     Indication: DRUG USE FOR UNKNOWN INDICATION
  13. NOOTROP SR [Concomitant]
     Indication: DRUG USE FOR UNKNOWN INDICATION
  14. LOSEC CPS [Concomitant]
     Indication: DRUG USE FOR UNKNOWN INDICATION
  15. DIOVAN [Concomitant]
     Indication: DRUG USE FOR UNKNOWN INDICATION
     Dates: start: 20091104
  16. IVOR [Concomitant]
     Indication: DRUG USE FOR UNKNOWN INDICATION
     Dosage: 2500
  17. SUPERAMINE [Concomitant]
     Indication: DRUG USE FOR UNKNOWN INDICATION
  18. BIOTINE [Concomitant]
     Indication: DRUG USE FOR UNKNOWN INDICATION

REACTIONS (1)
  - HIP FRACTURE [None]
